FAERS Safety Report 8482426-2 (Version None)
Quarter: 2012Q3

REPORT INFORMATION
  Report Type: 
  Country: None (occurrence: None)
  Receive Date: 20120702
  Receipt Date: 20120626
  Transmission Date: 20120928
  Serious: Yes (Other)
  Sender: FDA-Public Use
  Company Number: US-GLAXOSMITHKLINE-A0973395A

PATIENT
  Age: 50 Year
  Sex: Female
  Weight: 95 kg

DRUGS (12)
  1. IRON [Concomitant]
  2. OMEPRAZOLE [Concomitant]
  3. UNSPECIFIED MEDICATION [Concomitant]
  4. LISINOPRIL AND HYDROCHLOROTHIAZIDE [Concomitant]
  5. ATIVAN [Concomitant]
  6. CRANBERRY FRUIT [Concomitant]
  7. ST. JOHNS WORT [Concomitant]
  8. BUTALBITAL [Concomitant]
  9. VITAMIN TAB [Concomitant]
  10. TREXIMET [Suspect]
     Indication: MIGRAINE
     Dosage: 1TAB AS REQUIRED
     Route: 048
     Dates: start: 20090401, end: 20120411
  11. VITAMIN B-12 [Concomitant]
  12. MULTI-VITAMINS [Concomitant]

REACTIONS (4)
  - KIDNEY INFECTION [None]
  - NEPHROLITHIASIS [None]
  - PYREXIA [None]
  - HYPERTENSION [None]
